FAERS Safety Report 8894892 (Version 1)
Quarter: 2012Q4

REPORT INFORMATION
  Report Type: 
  Country: US (occurrence: US)
  Receive Date: 20121107
  Receipt Date: 20121107
  Transmission Date: 20130627
  Serious: No
  Sender: FDA-Public Use
  Company Number: US-AMGEN-USASP2011049835

PATIENT
  Age: 47 Year
  Sex: Female
  Weight: 54.42 kg

DRUGS (5)
  1. ENBREL [Suspect]
     Indication: PRODUCT USED FOR UNKNOWN INDICATION
     Dosage: 50 mg, qwk
  2. VITAMIN C ACEROLA [Concomitant]
  3. FISH OIL [Concomitant]
  4. SAM-E [Concomitant]
     Dosage: 400 mg, UNK
  5. B-COMPLEX                          /00003501/ [Concomitant]

REACTIONS (2)
  - Cough [Unknown]
  - Rash [Unknown]
